FAERS Safety Report 5266060-3 (Version None)
Quarter: 2007Q1

REPORT INFORMATION
  Report Type: 
  Country: None (occurrence: None)
  Receive Date: 20070315
  Receipt Date: 20070301
  Transmission Date: 20070707
  Serious: Yes (Hospitalization)
  Sender: FDA-Public Use
  Company Number: PHBS2007JP03951

PATIENT
  Age: 7 Year
  Sex: Female

DRUGS (1)
  1. TEGRETOL [Suspect]
     Route: 065

REACTIONS (2)
  - PNEUMONIA MYCOPLASMAL [None]
  - STEVENS-JOHNSON SYNDROME [None]
